FAERS Safety Report 26180744 (Version 1)
Quarter: 2025Q4

REPORT INFORMATION
  Report Type: Spontaneous
  Country: US (occurrence: None)
  Receive Date: 20251217
  Receipt Date: 20251217
  Transmission Date: 20260117
  Serious: Yes (Other)
  Sender: FDA-CTU
  Company Number: None

PATIENT
  Age: 78 Year
  Sex: Male
  Weight: 74.84 kg

DRUGS (2)
  1. DIHYDROXYACETONE [Suspect]
     Active Substance: DIHYDROXYACETONE
     Indication: Bronchiectasis
  2. DIHYDROXYACETONE [Suspect]
     Active Substance: DIHYDROXYACETONE
     Indication: Pneumonitis

REACTIONS (9)
  - Dyspnoea exertional [None]
  - Fatigue [None]
  - Sputum increased [None]
  - Pneumonia [None]
  - Therapy interrupted [None]
  - Bronchiectasis [None]
  - Organising pneumonia [None]
  - Pneumonitis aspiration [None]
  - Infection [None]

NARRATIVE: CASE EVENT DATE: 20251115
